FAERS Safety Report 6335438-9 (Version None)
Quarter: 2009Q3

REPORT INFORMATION
  Report Type: 
  Country: None (occurrence: None)
  Receive Date: 20090831
  Receipt Date: 20090825
  Transmission Date: 20100115
  Serious: Yes (Life-Threatening)
  Sender: FDA-Public Use
  Company Number: AT-ASTRAZENECA-2009SE09696

PATIENT
  Age: 90 Year
  Sex: Female
  Weight: 54 kg

DRUGS (9)
  1. SEROQUEL [Suspect]
     Route: 048
  2. DICLOFENAC [Suspect]
     Route: 065
  3. DIGIMERCK [Suspect]
     Route: 065
  4. LASILACTON [Suspect]
     Dosage: 20 MG/50 MG
     Route: 065
  5. SOMNUBENE [Suspect]
     Route: 065
  6. CAPOZIDE 25/15 [Concomitant]
     Dosage: 1/4 EVERY MORNING
     Route: 065
  7. DOMINAL [Concomitant]
     Route: 065
  8. LOVENOX [Concomitant]
     Route: 065
  9. PANTOLOX [Concomitant]
     Route: 065

REACTIONS (4)
  - CONFUSIONAL STATE [None]
  - HYPOKALAEMIA [None]
  - RENAL FAILURE [None]
  - THERAPEUTIC AGENT TOXICITY [None]
